FAERS Safety Report 15004680 (Version 1)
Quarter: 2018Q2

REPORT INFORMATION
  Report Type: Spontaneous
  Country: US (occurrence: US)
  Receive Date: 20180613
  Receipt Date: 20180613
  Transmission Date: 20180711
  Serious: Yes (Hospitalization)
  Sender: FDA-Public Use
  Company Number: US-ASTRAZENECA-2018SE75000

PATIENT
  Age: 25440 Day
  Sex: Male
  Weight: 108.4 kg

DRUGS (4)
  1. OXYCODONE [Concomitant]
     Active Substance: OXYCODONE
     Indication: PAIN
     Dosage: AS REQUIRED
     Route: 048
  2. SYMBICORT [Suspect]
     Active Substance: BUDESONIDE\FORMOTEROL FUMARATE DIHYDRATE
     Indication: TOBACCO USER
     Dosage: 160/4.5 MCG 2 PUFFS TWICE PER DAY
     Route: 055
  3. SYMBICORT [Suspect]
     Active Substance: BUDESONIDE\FORMOTEROL FUMARATE DIHYDRATE
     Indication: DYSPHONIA
     Dosage: 160/4.5 MCG 2 PUFFS TWICE PER DAY
     Route: 055
  4. METHOCARBAMOL. [Concomitant]
     Active Substance: METHOCARBAMOL
     Indication: PAIN
     Dosage: 500.0MG AS REQUIRED
     Route: 048
     Dates: start: 2015

REACTIONS (12)
  - Product storage error [Unknown]
  - Musculoskeletal pain [Unknown]
  - Incorrect dose administered [Unknown]
  - Fall [Unknown]
  - Vision blurred [Unknown]
  - Arthralgia [Unknown]
  - Product use in unapproved indication [Unknown]
  - Device issue [Unknown]
  - Drug dose omission [Unknown]
  - Cataract [Unknown]
  - Off label use [Unknown]
  - Wrong technique in product usage process [Unknown]

NARRATIVE: CASE EVENT DATE: 20160628
